FAERS Safety Report 6671337-0 (Version None)
Quarter: 2010Q2

REPORT INFORMATION
  Report Type: 
  Country: None (occurrence: None)
  Receive Date: 20100407
  Receipt Date: 20100405
  Transmission Date: 20101027
  Serious: Yes (Hospitalization)
  Sender: FDA-Public Use
  Company Number: A0789238A

PATIENT
  Age: 63 Year
  Sex: Female
  Weight: 193.2 kg

DRUGS (1)
  1. AVANDIA [Suspect]
     Route: 048
     Dates: end: 20070508

REACTIONS (2)
  - CARDIAC FAILURE CONGESTIVE [None]
  - FLUID IMBALANCE [None]
